FAERS Safety Report 24016750 (Version 1)
Quarter: 2024Q2

REPORT INFORMATION
  Report Type: Spontaneous
  Country: FR (occurrence: FR)
  Receive Date: 20240626
  Receipt Date: 20240626
  Transmission Date: 20240716
  Serious: Yes (Hospitalization, Other)
  Sender: FDA-Public Use
  Company Number: FR-JAZZ PHARMACEUTICALS-2024-FR-008686

PATIENT

DRUGS (4)
  1. CANNABIDIOL [Suspect]
     Active Substance: CANNABIDIOL
     Indication: Lennox-Gastaut syndrome
     Dosage: UNK
  2. CANNABIDIOL [Suspect]
     Active Substance: CANNABIDIOL
     Dosage: 240 MILLIGRAM, BID
     Dates: start: 20230913
  3. FYCOMPA [Suspect]
     Active Substance: PERAMPANEL
     Indication: Lennox-Gastaut syndrome
     Dosage: 6 MILLIGRAM
     Dates: start: 20240409, end: 20240619
  4. VIMPAT [Concomitant]
     Active Substance: LACOSAMIDE
     Indication: Seizure
     Dosage: 100 MILLIGRAM, BID
     Dates: start: 20230325

REACTIONS (7)
  - Altered state of consciousness [Recovered/Resolved]
  - Malaise [Unknown]
  - Headache [Unknown]
  - Dysstasia [Unknown]
  - Hypotonia [Unknown]
  - Dysarthria [Unknown]
  - Ataxia [Unknown]

NARRATIVE: CASE EVENT DATE: 20240528
